FAERS Safety Report 7396896-4 (Version None)
Quarter: 2011Q2

REPORT INFORMATION
  Report Type: 
  Country: None (occurrence: None)
  Receive Date: 20110406
  Receipt Date: 20110309
  Transmission Date: 20111010
  Serious: No
  Sender: FDA-Public Use
  Company Number: US-BAYER-2011-022858

PATIENT
  Sex: Female
  Weight: 58 kg

DRUGS (4)
  1. ALEVE [Suspect]
     Dosage: 2 DF, QD
     Route: 048
     Dates: start: 20110306, end: 20110306
  2. ALEVE [Suspect]
     Dosage: 2 DF, QD
     Route: 048
     Dates: start: 20110308, end: 20110308
  3. CENTRUM SILVER [Concomitant]
  4. ALEVE [Suspect]
     Indication: MUSCULOSKELETAL PAIN
     Dosage: 2 DF, QD
     Route: 048
     Dates: start: 20110305, end: 20110305

REACTIONS (1)
  - MUSCULOSKELETAL PAIN [None]
